FAERS Safety Report 5521844-9 (Version None)
Quarter: 2007Q4

REPORT INFORMATION
  Report Type: 
  Country: None (occurrence: None)
  Receive Date: 20071120
  Receipt Date: 20071108
  Transmission Date: 20080405
  Serious: Yes (Death, Hospitalization)
  Sender: FDA-Public Use
  Company Number: US-ROCHE-474382

PATIENT
  Age: 59 Year
  Sex: Female

DRUGS (3)
  1. CAPECITABINE [Suspect]
     Indication: GASTROINTESTINAL CARCINOMA
     Dosage: FOR 2 WEEKS ON AND 1 WEEK OFF
     Route: 048
  2. CAPECITABINE [Suspect]
     Dosage: FOR 2 WEEKS ON AND 1 WEEK OFF
     Route: 048
  3. CAPECITABINE [Suspect]
     Dosage: FOR 2 WEEKS ON AND 1 WEEK OFF THIRD CYCLE
     Route: 048

REACTIONS (1)
  - DRUG TOXICITY [None]
